FAERS Safety Report 11982865 (Version 2)
Quarter: 2016Q1

REPORT INFORMATION
  Report Type: Spontaneous
  Country: CN (occurrence: CN)
  Receive Date: 20160201
  Receipt Date: 20160330
  Transmission Date: 20160526
  Serious: No
  Sender: FDA-Public Use
  Company Number: CN-JNJFOC-20160121822

PATIENT
  Age: 78 Year
  Sex: Male

DRUGS (3)
  1. DUROGESIC D-TRANS [Suspect]
     Active Substance: FENTANYL
     Indication: CANCER PAIN
     Route: 062
     Dates: start: 20160125
  2. DUROGESIC D-TRANS [Suspect]
     Active Substance: FENTANYL
     Indication: CANCER PAIN
     Route: 062
  3. GEFITINIB [Concomitant]
     Active Substance: GEFITINIB
     Route: 065

REACTIONS (3)
  - Wrong technique in product usage process [Unknown]
  - Pain [Unknown]
  - Off label use [Unknown]
